FAERS Safety Report 25417344 (Version 1)
Quarter: 2025Q2

REPORT INFORMATION
  Report Type: Spontaneous
  Country: US (occurrence: None)
  Receive Date: 20250608
  Receipt Date: 20250608
  Transmission Date: 20250716
  Serious: Yes (Other)
  Sender: FDA-CTU
  Company Number: None

PATIENT

DRUGS (1)
  1. LEXAPRO [Suspect]
     Active Substance: ESCITALOPRAM OXALATE
     Indication: Anxiety
     Route: 048
     Dates: start: 20150815, end: 20240805

REACTIONS (7)
  - Withdrawal syndrome [None]
  - Mania [None]
  - Psychotic disorder [None]
  - Hypomania [None]
  - Depression [None]
  - Suicidal ideation [None]
  - Educational problem [None]

NARRATIVE: CASE EVENT DATE: 20240527
